FAERS Safety Report 17691372 (Version 4)
Quarter: 2021Q2

REPORT INFORMATION
  Report Type: Spontaneous
  Country: US (occurrence: US)
  Receive Date: 20200422
  Receipt Date: 20210420
  Transmission Date: 20210716
  Serious: No
  Sender: FDA-Public Use
  Company Number: US-ALLERGAN-2002845US

PATIENT
  Sex: Female

DRUGS (3)
  1. VITAMIN D [Concomitant]
     Active Substance: VITAMIN D NOS
     Dosage: 2000 UNITS
     Route: 048
  2. RISEDRONATE SODIUM UNK [Suspect]
     Active Substance: RISEDRONATE SODIUM
     Indication: OSTEOPENIA
     Dosage: (RIGHT AFTER BREAKFAST WITH A GLASS OF WATER)
     Route: 065
  3. RISEDRONATE SODIUM UNK [Suspect]
     Active Substance: RISEDRONATE SODIUM
     Dosage: 35 MG, Q WEEK (ON AN EMPTY STOMACH)
     Route: 065

REACTIONS (3)
  - Product administration error [Unknown]
  - Off label use [Unknown]
  - Abdominal discomfort [Recovered/Resolved]
